FAERS Safety Report 13081492 (Version 1)
Quarter: 2016Q4

REPORT INFORMATION
  Report Type: Spontaneous
  Country: None (occurrence: US)
  Receive Date: 20161230
  Receipt Date: 20161230
  Transmission Date: 20170207
  Serious: Yes (Death)
  Sender: FDA-Public Use
  Company Number: None

PATIENT
  Age: 37 Year
  Sex: Male
  Weight: 98 kg

DRUGS (5)
  1. VINCRISTINE SULFATE. [Suspect]
     Active Substance: VINCRISTINE SULFATE
     Dates: end: 20161212
  2. CYTARABINE. [Suspect]
     Active Substance: CYTARABINE
     Dates: end: 20161118
  3. DEXAMETHASONE. [Suspect]
     Active Substance: DEXAMETHASONE
     Dates: end: 20161211
  4. METHOTREXATE. [Suspect]
     Active Substance: METHOTREXATE
     Dates: end: 20161205
  5. DAUNORUBICIN [Suspect]
     Active Substance: DAUNORUBICIN
     Dates: end: 20161212

REACTIONS (8)
  - Neutropenic sepsis [None]
  - Fungal sepsis [None]
  - Multiple organ dysfunction syndrome [None]
  - Hypotension [None]
  - Unresponsive to stimuli [None]
  - Fungal infection [None]
  - Acid base balance abnormal [None]
  - Renal failure [None]

NARRATIVE: CASE EVENT DATE: 20161213
